FAERS Safety Report 4372955-5 (Version None)
Quarter: 2004Q2

REPORT INFORMATION
  Report Type: 
  Country: None (occurrence: None)
  Receive Date: 20040603
  Receipt Date: 20040522
  Transmission Date: 20050107
  Serious: Yes (Hospitalization)
  Sender: FDA-Public Use
  Company Number: 2004215117US

PATIENT
  Age: 40 Year
  Sex: Female
  Weight: 62.1 kg

DRUGS (2)
  1. DEPO-PROVERA [Suspect]
     Indication: CERVICAL CYST
     Dosage: SEE IMAGE
     Dates: start: 20011017, end: 20011017
  2. DEPO-PROVERA [Suspect]
     Indication: CERVICAL CYST
     Dosage: SEE IMAGE
     Dates: start: 20031001, end: 20031001

REACTIONS (3)
  - IMPAIRED WORK ABILITY [None]
  - PANIC ATTACK [None]
  - PARANOIA [None]
